FAERS Safety Report 7082227-6 (Version None)
Quarter: 2010Q4

REPORT INFORMATION
  Report Type: 
  Country: None (occurrence: None)
  Receive Date: 20101103
  Receipt Date: 20101021
  Transmission Date: 20110411
  Serious: Yes (Other)
  Sender: FDA-Public Use
  Company Number: GB-MYLANLABS-2010S1016922

PATIENT
  Age: 37 Year
  Sex: Female

DRUGS (5)
  1. CITALOPRAM HYDROBROMIDE [Suspect]
     Indication: DEPRESSION
     Dates: start: 20100618, end: 20100902
  2. CITALOPRAM HYDROBROMIDE [Interacting]
  3. LEVOTHYROXINE [Interacting]
     Indication: HYPOTHYROIDISM
     Route: 048
     Dates: end: 20100902
  4. LEVOTHYROXINE [Interacting]
     Route: 048
  5. VITAMIN B COMPLEX CAP [Concomitant]
     Indication: PRODUCT USED FOR UNKNOWN INDICATION

REACTIONS (3)
  - ANXIETY [None]
  - DRUG INTERACTION [None]
  - THYROXINE FREE INCREASED [None]
